FAERS Safety Report 5282561-6 (Version None)
Quarter: 2007Q1

REPORT INFORMATION
  Report Type: 
  Country: None (occurrence: None)
  Receive Date: 20070326
  Receipt Date: 20070315
  Transmission Date: 20070707
  Serious: Yes (Hospitalization)
  Sender: FDA-Public Use
  Company Number: 07-000600

PATIENT
  Age: 46 Year
  Sex: Male
  Weight: 79.4 kg

DRUGS (1)
  1. DOVONEX [Suspect]
     Indication: PSORIASIS
     Dosage: 0.005 %, BID, TOPICAL
     Route: 061
     Dates: start: 20000101

REACTIONS (10)
  - ACCIDENT [None]
  - ARTHRALGIA [None]
  - CONDITION AGGRAVATED [None]
  - DIABETES MELLITUS INSULIN-DEPENDENT [None]
  - DYSGEUSIA [None]
  - GAIT DISTURBANCE [None]
  - HEAD INJURY [None]
  - INJURY [None]
  - PRURITUS [None]
  - VISION BLURRED [None]
